FAERS Safety Report 6282598-4 (Version None)
Quarter: 2009Q3

REPORT INFORMATION
  Report Type: 
  Country: None (occurrence: None)
  Receive Date: 20090724
  Receipt Date: 20090713
  Transmission Date: 20100115
  Serious: Yes (Hospitalization)
  Sender: FDA-Public Use
  Company Number: PHHY2009AU25920

PATIENT
  Sex: Male

DRUGS (5)
  1. CLOZARIL [Suspect]
     Indication: SCHIZOPHRENIA
     Dosage: 900
     Dates: start: 20060628
  2. FLUVOXAMINE MALEATE [Concomitant]
     Dosage: 25 MG DAILY
     Route: 048
  3. RISPERIDONE [Concomitant]
     Indication: SCHIZOPHRENIA
     Dosage: 75 MG 2/52
     Route: 030
     Dates: start: 20070101
  4. VALPROATE SODIUM [Concomitant]
     Indication: EPILEPSY
     Dosage: 100 MG, BID
     Dates: start: 20070101
  5. QUETIAPINE FUMARATE [Concomitant]
     Indication: SCHIZOPHRENIA
     Dosage: 300 MG, BID
     Route: 048
     Dates: start: 20090101

REACTIONS (3)
  - MENTAL IMPAIRMENT [None]
  - NEUTROPHIL COUNT DECREASED [None]
  - WHITE BLOOD CELL COUNT DECREASED [None]
